FAERS Safety Report 4890009-6 (Version None)
Quarter: 2006Q1

REPORT INFORMATION
  Report Type: 
  Country: None (occurrence: None)
  Receive Date: 20060124
  Receipt Date: 20060118
  Transmission Date: 20060701
  Serious: Yes (Hospitalization)
  Sender: FDA-Public Use
  Company Number: FR-ROCHE-432612

PATIENT
  Age: 64 Year
  Sex: Female

DRUGS (4)
  1. PEGASYS [Suspect]
     Indication: HEPATITIS C
     Route: 065
     Dates: start: 20051022, end: 20051115
  2. COPEGUS [Suspect]
     Indication: HEPATITIS C
     Route: 065
     Dates: start: 20051022
  3. ARANESP [Concomitant]
     Dosage: INTRODUCED BEFORE THE START OF RIBAVIRIN AND PEG-INTERFERON ALFA 2A.
  4. STABLON [Concomitant]

REACTIONS (1)
  - CEREBELLAR SYNDROME [None]
